FAERS Safety Report 11105874 (Version 1)
Quarter: 2015Q2

REPORT INFORMATION
  Report Type: Spontaneous
  Country: US (occurrence: US)
  Receive Date: 20150512
  Receipt Date: 20150512
  Transmission Date: 20150821
  Serious: Yes (Hospitalization)
  Sender: FDA-Public Use
  Company Number: US-AUROBINDO-AUR-APL-2015-04152

PATIENT
  Age: 72 Year
  Sex: Male

DRUGS (1)
  1. HYDROCHLOROTHIAZIDE. [Suspect]
     Active Substance: HYDROCHLOROTHIAZIDE
     Indication: HYPERTENSION
     Dosage: 25 TO 100 MG/D
     Route: 065

REACTIONS (10)
  - Fatigue [Unknown]
  - Blood creatinine increased [Unknown]
  - Pyrexia [Unknown]
  - Musculoskeletal pain [Unknown]
  - Confusional state [Unknown]
  - Blood calcium increased [Unknown]
  - Back pain [Unknown]
  - Blood phosphorus increased [Unknown]
  - Hypercalcaemia [Unknown]
  - Hypercalciuria [Unknown]
